FAERS Safety Report 21004287 (Version 3)
Quarter: 2022Q4

REPORT INFORMATION
  Report Type: Report from Study
  Country: JP (occurrence: JP)
  Receive Date: 20220624
  Receipt Date: 20221213
  Transmission Date: 20230113
  Serious: Yes (Hospitalization)
  Sender: FDA-Public Use
  Company Number: JP-ELI_LILLY_AND_COMPANY-JP202205011055

PATIENT
  Age: 71 Year
  Sex: Female
  Weight: 48 kg

DRUGS (3)
  1. RETEVMO [Suspect]
     Active Substance: SELPERCATINIB
     Indication: Non-small cell lung cancer stage IV
     Dosage: 160 MG, BID
     Route: 048
     Dates: start: 20220511, end: 20220521
  2. RETEVMO [Suspect]
     Active Substance: SELPERCATINIB
     Dosage: 40 MG, BID
     Route: 048
     Dates: start: 20220525, end: 20220601
  3. RETEVMO [Suspect]
     Active Substance: SELPERCATINIB
     Dosage: 80 MG, BID
     Route: 048
     Dates: start: 20220602, end: 20220608

REACTIONS (2)
  - Hepatic function abnormal [Recovered/Resolved]
  - Pyrexia [Recovered/Resolved]

NARRATIVE: CASE EVENT DATE: 20220521
